FAERS Safety Report 25951463 (Version 2)
Quarter: 2025Q4

REPORT INFORMATION
  Report Type: Spontaneous
  Country: US (occurrence: US)
  Receive Date: 20251023
  Receipt Date: 20251025
  Transmission Date: 20260117
  Serious: Yes (Other)
  Sender: CSL BEHRING
  Company Number: US-BEH-2025221693

PATIENT
  Age: 54 Year
  Sex: Female
  Weight: 74.83 kg

DRUGS (1)
  1. HIZENTRA [Suspect]
     Active Substance: HUMAN IMMUNOGLOBULIN G
     Indication: Ocular pemphigoid
     Dosage: 1 G/85 ML, QW
     Route: 058

REACTIONS (4)
  - Angioedema [Recovering/Resolving]
  - Infusion site urticaria [Recovering/Resolving]
  - Infusion site pruritus [Unknown]
  - Off label use [Unknown]
